FAERS Safety Report 4897037-5 (Version None)
Quarter: 2005Q4

REPORT INFORMATION
  Report Type: 
  Country: None (occurrence: None)
  Receive Date: 20051228
  Receipt Date: 20050830
  Transmission Date: 20060501
  Serious: Yes (Hospitalization, Other)
  Sender: FDA-Public Use
  Company Number: US_0408104540

PATIENT
  Age: 42 Year
  Sex: Female
  Weight: 97 kg

DRUGS (14)
  1. ZYPREXA [Suspect]
     Indication: BIPOLAR DISORDER
     Dosage: 15 MG/1 AT BEDTIME
     Dates: start: 19970129, end: 20040310
  2. HUMULIN 70/30 [Suspect]
     Indication: DIABETES MELLITUS NON-INSULIN-DEPENDENT
     Dosage: 110 U DAY
     Dates: start: 20001201
  3. LITHIUM [Concomitant]
  4. PRILOSEC [Concomitant]
  5. LEVOTHROID [Concomitant]
  6. AVAPRO [Concomitant]
  7. IRON SUPPLEMENT [Concomitant]
  8. PAXIL [Concomitant]
  9. LOTENSIN [Concomitant]
  10. DESOGESTREL W/ETHINYLESTRADIOL [Concomitant]
  11. BUSPAR [Concomitant]
  12. SARAFEM (FLUOXETINE) [Concomitant]
  13. EFFEXOR [Concomitant]
  14. MULTI-VITAMIN [Concomitant]

REACTIONS (33)
  - ANOXIC ENCEPHALOPATHY [None]
  - ASPIRATION [None]
  - BALANCE DISORDER [None]
  - DEHYDRATION [None]
  - DIABETES MELLITUS NON-INSULIN-DEPENDENT [None]
  - DIABETIC COMA [None]
  - DIABETIC KETOACIDOSIS [None]
  - DISSEMINATED INTRAVASCULAR COAGULATION [None]
  - ELECTROENCEPHALOGRAM ABNORMAL [None]
  - HYPERGLYCAEMIA [None]
  - HYPERTENSION [None]
  - HYPOGLYCAEMIA [None]
  - IMPAIRED GASTRIC EMPTYING [None]
  - INCREASED APPETITE [None]
  - LOW DENSITY LIPOPROTEIN INCREASED [None]
  - MASS [None]
  - MENOPAUSAL SYMPTOMS [None]
  - METABOLIC ACIDOSIS [None]
  - OEDEMA [None]
  - OTITIS MEDIA [None]
  - PANCREATIC CYST [None]
  - PANCREATITIS [None]
  - PERINEAL PAIN [None]
  - POLLAKIURIA [None]
  - PYREXIA [None]
  - RENAL FAILURE ACUTE [None]
  - RESPIRATORY FAILURE [None]
  - RHABDOMYOLYSIS [None]
  - SHOCK [None]
  - SINOBRONCHITIS [None]
  - SINUS CONGESTION [None]
  - SINUSITIS [None]
  - WEIGHT INCREASED [None]
